FAERS Safety Report 14656390 (Version 3)
Quarter: 2018Q2

REPORT INFORMATION
  Report Type: Report from Study
  Country: US (occurrence: US)
  Receive Date: 20180319
  Receipt Date: 20180509
  Transmission Date: 20180711
  Serious: Yes (Hospitalization)
  Sender: FDA-Public Use
  Company Number: US-EISAI MEDICAL RESEARCH-EC-2018-037086

PATIENT
  Age: 68 Year
  Sex: Male
  Weight: 72.9 kg

DRUGS (18)
  1. EVEROLIMUS. [Suspect]
     Active Substance: EVEROLIMUS
     Indication: RENAL CANCER
     Route: 048
     Dates: start: 20180301, end: 201803
  2. LENVATINIB [Suspect]
     Active Substance: LENVATINIB
     Indication: RENAL CANCER
     Dosage: BLINDED DOSAGE
     Route: 048
     Dates: start: 20180301, end: 201803
  3. CALCITROL [Concomitant]
     Active Substance: CALCITRIOL
  4. MARINOL [Concomitant]
     Active Substance: DRONABINOL
  5. FAMOTIDINE. [Concomitant]
     Active Substance: FAMOTIDINE
  6. VENTOLIN HFA [Concomitant]
     Active Substance: ALBUTEROL SULFATE
  7. ASPIRIN. [Concomitant]
     Active Substance: ASPIRIN
  8. VITAMIN B12 [Concomitant]
     Active Substance: CYANOCOBALAMIN
  9. HUMALOG [Concomitant]
     Active Substance: INSULIN LISPRO
  10. MORPHINE [Concomitant]
     Active Substance: MORPHINE
  11. LENVATINIB [Suspect]
     Active Substance: LENVATINIB
     Dosage: BLINDED DOSAGE
     Route: 048
     Dates: start: 2018, end: 20180423
  12. EVEROLIMUS. [Suspect]
     Active Substance: EVEROLIMUS
     Route: 048
     Dates: start: 2018, end: 20180423
  13. TRESIBA [Concomitant]
     Active Substance: INSULIN DEGLUDEC
  14. TRADJENTA [Concomitant]
     Active Substance: LINAGLIPTIN
  15. HYDRALAZINE [Concomitant]
     Active Substance: HYDRALAZINE HYDROCHLORIDE
  16. AMLODIPINE [Concomitant]
     Active Substance: AMLODIPINE BESYLATE
  17. PRAVASTATINE [Concomitant]
     Active Substance: PRAVASTATIN
  18. FUROSEMIDE. [Concomitant]
     Active Substance: FUROSEMIDE

REACTIONS (4)
  - Chest pain [Recovered/Resolved]
  - Hyperglycaemia [Recovering/Resolving]
  - Acute myocardial infarction [Unknown]
  - Mental status changes [Recovering/Resolving]

NARRATIVE: CASE EVENT DATE: 20180309
